FAERS Safety Report 25839961 (Version 1)
Quarter: 2025Q3

REPORT INFORMATION
  Report Type: Spontaneous
  Country: EU (occurrence: EU)
  Receive Date: 20250924
  Receipt Date: 20250924
  Transmission Date: 20251021
  Serious: Yes (Death, Other)
  Sender: MUNDIPHARMA EDO
  Company Number: EU-NAPPMUNDI-GBR-2025-0129092

PATIENT
  Age: 44 Year
  Sex: Female

DRUGS (2)
  1. REZAFUNGIN ACETATE [Suspect]
     Active Substance: REZAFUNGIN ACETATE
     Indication: Osteomyelitis fungal
     Route: 065
  2. REZAFUNGIN ACETATE [Suspect]
     Active Substance: REZAFUNGIN ACETATE
     Indication: Mediastinitis

REACTIONS (2)
  - Intestinal perforation [Fatal]
  - Therapy partial responder [Unknown]
